FAERS Safety Report 7634756-1 (Version None)
Quarter: 2011Q3

REPORT INFORMATION
  Report Type: 
  Country: None (occurrence: None)
  Receive Date: 20110726
  Receipt Date: 20110722
  Transmission Date: 20111222
  Serious: Yes (Other)
  Sender: FDA-Public Use
  Company Number: FR-BIOGENIDEC-2011BI027044

PATIENT
  Age: 43 Year
  Sex: Female

DRUGS (3)
  1. ALPRAZOLAM [Concomitant]
     Indication: EPILEPSY
     Route: 048
  2. DEPAKENE [Concomitant]
     Indication: EPILEPSY
     Route: 048
  3. TYSABRI [Suspect]
     Indication: MULTIPLE SCLEROSIS
     Route: 042
     Dates: start: 20110712

REACTIONS (1)
  - EPILEPSY [None]
